FAERS Safety Report 5173234-9 (Version None)
Quarter: 2006Q4

REPORT INFORMATION
  Report Type: 
  Country: None (occurrence: None)
  Receive Date: 20061214
  Receipt Date: 20061201
  Transmission Date: 20070319
  Serious: Yes (Other)
  Sender: FDA-Public Use
  Company Number: AU-AVENTIS-200616303EU

PATIENT
  Age: 75 Year
  Sex: Female

DRUGS (2)
  1. CLEXANE [Suspect]
     Indication: DEEP VEIN THROMBOSIS
     Dates: start: 20061101
  2. WARFARIN SODIUM [Concomitant]

REACTIONS (4)
  - DIARRHOEA [None]
  - HEADACHE [None]
  - NAUSEA [None]
  - PITUITARY TUMOUR [None]
